FAERS Safety Report 8521559-9 (Version None)
Quarter: 2012Q3

REPORT INFORMATION
  Report Type: 
  Country: None (occurrence: None)
  Receive Date: 20120719
  Receipt Date: 20120713
  Transmission Date: 20120928
  Serious: Yes (Other)
  Sender: FDA-Public Use
  Company Number: PHEH2012US006411

PATIENT
  Sex: Female

DRUGS (14)
  1. PREDNISONE [Concomitant]
     Indication: MUCKLE-WELLS SYNDROME
     Dosage: 2.5 MG, QD
     Route: 048
  2. ILARIS [Suspect]
     Dosage: 180 MG, UNK
     Dates: start: 20120101
  3. PROGRAF [Concomitant]
     Indication: ORGAN TRANSPLANT
     Dosage: 2 MG, BID
     Route: 048
     Dates: start: 20030101
  4. ILARIS [Suspect]
     Dosage: 300 MG EVERY 6 WEEKS
     Route: 058
  5. LEXAPRO [Concomitant]
     Dosage: 10 MG, QD
  6. FERROUS SULFATE TAB [Concomitant]
  7. FISH OIL [Concomitant]
  8. MYCOPHENOLIC ACID [Concomitant]
     Dosage: 250 MG, BID
  9. CELLCEPT [Concomitant]
     Indication: ORGAN TRANSPLANT
     Dosage: 1000 MG, BID
     Route: 048
     Dates: start: 20030101
  10. ILARIS [Suspect]
     Indication: MUCKLE-WELLS SYNDROME
     Dosage: 150 MG EVERY 8 WEEKS
     Route: 058
     Dates: start: 20120216
  11. NEXIUM [Concomitant]
     Dosage: 20 MG, BID
  12. ILARIS [Suspect]
     Dosage: 150 MG EVERY 8 WEEKS
     Route: 058
     Dates: start: 20120402
  13. METOPROLOL SUCCINATE [Concomitant]
     Dosage: 12.5 MG, UNK
  14. MULTI-VITAMINS [Concomitant]

REACTIONS (12)
  - WEIGHT INCREASED [None]
  - ARTHRALGIA [None]
  - INFLAMMATION [None]
  - DRUG EFFECT DECREASED [None]
  - MIGRAINE [None]
  - HEADACHE [None]
  - URTICARIA [None]
  - RASH [None]
  - FEELING ABNORMAL [None]
  - MUCKLE-WELLS SYNDROME [None]
  - CONDITION AGGRAVATED [None]
  - STRESS [None]
